FAERS Safety Report 23426469 (Version 1)
Quarter: 2024Q1

REPORT INFORMATION
  Report Type: Report from Study
  Country: US (occurrence: US)
  Receive Date: 20240122
  Receipt Date: 20240122
  Transmission Date: 20240409
  Serious: Yes (Hospitalization, Other)
  Sender: FDA-Public Use
  Company Number: US-HORIZON THERAPEUTICS-HZN-2024-000728

PATIENT

DRUGS (1)
  1. PROCYSBI [Suspect]
     Active Substance: CYSTEAMINE BITARTRATE
     Indication: Cystinosis
     Dosage: TAKE 22 CAPSULES (1,650 MG TOTAL) BY MOUTH EVERY 12 HOURS
     Route: 048

REACTIONS (4)
  - Pneumonia [Unknown]
  - Kidney infection [Unknown]
  - COVID-19 [Unknown]
  - Gastrointestinal disorder [Unknown]

NARRATIVE: CASE EVENT DATE: 20230601
